FAERS Safety Report 25101123 (Version 1)
Quarter: 2025Q1

REPORT INFORMATION
  Report Type: Spontaneous
  Country: US (occurrence: US)
  Receive Date: 20250320
  Receipt Date: 20250320
  Transmission Date: 20250408
  Serious: Yes (Death, Hospitalization, Other)
  Sender: AMGEN
  Company Number: US-AMGEN-USASP2025049232

PATIENT

DRUGS (2)
  1. RITUXIMAB [Suspect]
     Active Substance: RITUXIMAB
     Indication: B-cell lymphoma
     Route: 065
  2. FILGRASTIM [Suspect]
     Active Substance: FILGRASTIM
     Indication: Cytopenia
     Route: 065

REACTIONS (28)
  - Death [Fatal]
  - Acute myeloid leukaemia [Fatal]
  - Follicular lymphoma [Fatal]
  - Mantle cell lymphoma [Fatal]
  - Diffuse large B-cell lymphoma [Fatal]
  - Neurotoxicity [Fatal]
  - COVID-19 [Fatal]
  - Infection [Fatal]
  - Cardiac disorder [Fatal]
  - Respiratory failure [Fatal]
  - Haemorrhagic stroke [Fatal]
  - Septic shock [Fatal]
  - Multiple organ dysfunction syndrome [Fatal]
  - COVID-19 pneumonia [Fatal]
  - Immune effector cell-associated neurotoxicity syndrome [Unknown]
  - Atrial fibrillation [Unknown]
  - Urinary tract infection [Unknown]
  - Febrile neutropenia [Unknown]
  - Orthostatic hypotension [Unknown]
  - Cytokine release syndrome [Unknown]
  - Diarrhoea [Unknown]
  - Physical deconditioning [Unknown]
  - Unevaluable event [Unknown]
  - Failure to thrive [Unknown]
  - Cytopenia [Unknown]
  - Fungal infection [Unknown]
  - Bacterial infection [Unknown]
  - Viral infection [Unknown]
